FAERS Safety Report 18504902 (Version 3)
Quarter: 2020Q4

REPORT INFORMATION
  Report Type: Spontaneous
  Country: FR (occurrence: FR)
  Receive Date: 20201115
  Receipt Date: 20201229
  Transmission Date: 20210114
  Serious: Yes (Other)
  Sender: FDA-Public Use
  Company Number: FR-AUROBINDO-AUR-APL-2020-055681

PATIENT
  Age: 17 Year
  Sex: Male
  Weight: 67 kg

DRUGS (20)
  1. PANTOPRAZOLE [Suspect]
     Active Substance: PANTOPRAZOLE
     Indication: GASTROINTESTINAL HAEMORRHAGE
     Dosage: 80 MILLIGRAM, ONCE A DAY
     Route: 048
     Dates: start: 20200912, end: 20200917
  2. AMIKACINE [Suspect]
     Active Substance: AMIKACIN
     Indication: INFECTION
     Dosage: UNK
     Route: 042
     Dates: start: 20200910, end: 20200911
  3. NALBUPHINE [Concomitant]
     Active Substance: NALBUPHINE
     Indication: PRODUCT USED FOR UNKNOWN INDICATION
     Dosage: UNK
     Route: 065
  4. KETAMINE RENAUDIN [Concomitant]
     Active Substance: KETAMINE
     Indication: PRODUCT USED FOR UNKNOWN INDICATION
     Dosage: UNK
     Route: 065
  5. MORPHINE RENAUDIN [Concomitant]
     Active Substance: MORPHINE
     Indication: PRODUCT USED FOR UNKNOWN INDICATION
     Dosage: UNK
     Route: 065
  6. PLITICAN [Concomitant]
     Active Substance: ALIZAPRIDE HYDROCHLORIDE
     Indication: PRODUCT USED FOR UNKNOWN INDICATION
     Dosage: UNK
     Route: 065
  7. PANTOPRAZOLE SODIUM. [Suspect]
     Active Substance: PANTOPRAZOLE SODIUM
     Indication: GASTROINTESTINAL HAEMORRHAGE
     Dosage: UNK
     Route: 042
     Dates: start: 20200909, end: 20200911
  8. AMBISOME [Suspect]
     Active Substance: AMPHOTERICIN B
     Indication: ANTIFUNGAL TREATMENT
     Dosage: 230 MILLIGRAM, ONCE A DAY
     Route: 042
     Dates: start: 20200904, end: 20200917
  9. DAPTOMYCINE MEDAC [Suspect]
     Active Substance: DAPTOMYCIN
     Indication: INFECTION
     Dosage: 750 MILLIGRAM, ONCE A DAY
     Route: 042
     Dates: start: 20200903, end: 20200917
  10. MYCOSTATINE [Concomitant]
     Active Substance: NYSTATIN
     Indication: PRODUCT USED FOR UNKNOWN INDICATION
     Dosage: UNK
     Route: 065
  11. ATARAX [Concomitant]
     Active Substance: HYDROXYZINE HYDROCHLORIDE
     Indication: PRODUCT USED FOR UNKNOWN INDICATION
     Dosage: UNK
     Route: 065
  12. GRANOCYTE [Concomitant]
     Active Substance: LENOGRASTIM
     Indication: PRODUCT USED FOR UNKNOWN INDICATION
     Dosage: UNK
     Route: 065
  13. LOXEN [Concomitant]
     Indication: PRODUCT USED FOR UNKNOWN INDICATION
     Dosage: UNK
     Route: 065
  14. VITAMINE K1 CHEPLAPHARM [Concomitant]
     Active Substance: PHYTONADIONE
     Indication: PRODUCT USED FOR UNKNOWN INDICATION
     Dosage: UNK
     Route: 065
  15. ZOPHREN [Concomitant]
     Active Substance: ONDANSETRON
     Indication: PRODUCT USED FOR UNKNOWN INDICATION
     Dosage: UNK
     Route: 065
  16. MEROPENEM PANPHARMA [Suspect]
     Active Substance: MEROPENEM
     Indication: INFECTION
     Dosage: 3 GRAM, ONCE A DAY
     Route: 042
     Dates: start: 20200910, end: 20200917
  17. NEFOPAM MEDISOL [Concomitant]
     Active Substance: NEFOPAM HYDROCHLORIDE
     Indication: PRODUCT USED FOR UNKNOWN INDICATION
     Dosage: UNK
     Route: 065
  18. PARACETAMOL [Concomitant]
     Active Substance: ACETAMINOPHEN
     Indication: PRODUCT USED FOR UNKNOWN INDICATION
     Dosage: UNK
     Route: 065
  19. AMLODIPINE [Concomitant]
     Active Substance: AMLODIPINE BESYLATE
     Indication: PRODUCT USED FOR UNKNOWN INDICATION
     Dosage: UNK
     Route: 065
  20. DEBRIDAT [Concomitant]
     Active Substance: TRIMEBUTINE MALEATE
     Indication: PRODUCT USED FOR UNKNOWN INDICATION
     Dosage: UNK
     Route: 065

REACTIONS (1)
  - Drug reaction with eosinophilia and systemic symptoms [Recovered/Resolved]

NARRATIVE: CASE EVENT DATE: 20200916
